FAERS Safety Report 23667297 (Version 1)
Quarter: 2024Q1

REPORT INFORMATION
  Report Type: Spontaneous
  Country: ES (occurrence: ES)
  Receive Date: 20240325
  Receipt Date: 20240325
  Transmission Date: 20240409
  Serious: Yes (Hospitalization)
  Sender: FDA-Public Use
  Company Number: None

PATIENT
  Age: 44 Year
  Sex: Female

DRUGS (3)
  1. OLANZAPINE [Suspect]
     Active Substance: OLANZAPINE
     Indication: Depression
     Dosage: DAILY DOSE: 10 MILLIGRAM
     Dates: start: 20220424, end: 20220622
  2. LITHIUM CARBONATE [Suspect]
     Active Substance: LITHIUM CARBONATE
     Indication: Depression
     Dates: start: 20220426, end: 20220622
  3. PALIPERIDONE PALMITATE [Suspect]
     Active Substance: PALIPERIDONE PALMITATE
     Indication: Depression
     Dosage: 1/28 DAYS
     Dates: start: 20220426, end: 20220622

REACTIONS (5)
  - Diarrhoea [Recovered/Resolved]
  - Amenorrhoea [Recovered/Resolved]
  - Akathisia [Recovering/Resolving]
  - Musculoskeletal stiffness [Unknown]
  - Dry skin [Recovering/Resolving]

NARRATIVE: CASE EVENT DATE: 20220301
